FAERS Safety Report 6659072-6 (Version None)
Quarter: 2010Q1

REPORT INFORMATION
  Report Type: 
  Country: None (occurrence: None)
  Receive Date: 20100330
  Receipt Date: 20100317
  Transmission Date: 20100710
  Serious: No
  Sender: FDA-Public Use
  Company Number: US-B.I. PHARMACEUTICALS,INC./RIDGEFIELD-2010-BP-02844BP

PATIENT
  Sex: Female

DRUGS (38)
  1. SPIRIVA [Suspect]
     Indication: CHRONIC OBSTRUCTIVE PULMONARY DISEASE
     Dosage: 18 MCG
     Route: 055
     Dates: start: 20050101
  2. SPIRIVA [Suspect]
     Indication: ASTHMA
  3. SPIRIVA [Suspect]
     Indication: EMPHYSEMA
  4. SPIRIVA [Suspect]
     Indication: BRONCHITIS
  5. METFORMIN (GLUCOPHAGE) [Concomitant]
     Indication: DIABETES MELLITUS
     Route: 048
     Dates: start: 19970101
  6. AMLODIPINE [Concomitant]
     Indication: HYPERTENSION
     Route: 048
     Dates: start: 20091201
  7. AMLODIPINE [Concomitant]
     Indication: ANTICOAGULANT THERAPY
     Route: 048
     Dates: start: 19970101
  8. ADVAIR DISKUS 100/50 [Concomitant]
     Indication: ASTHMA
     Route: 048
  9. CRESTOR [Concomitant]
  10. CRESTOR [Concomitant]
     Dates: start: 19970101
  11. EFFEXOR XR [Concomitant]
  12. EFFEXOR XR [Concomitant]
     Dates: start: 19970101
  13. HYDROCHLOROTHIAZIDE [Concomitant]
  14. HYDROCHLOROTHIAZIDE [Concomitant]
     Dates: start: 19970101
  15. POTASSIUM CL [Concomitant]
  16. POTASSIUM CL [Concomitant]
     Dates: start: 19970101
  17. RANITIDINE [Concomitant]
  18. RANITIDINE [Concomitant]
     Dates: start: 19970101
  19. SINGULAIR [Concomitant]
  20. SINGULAIR [Concomitant]
     Dates: start: 19970101
  21. THEOPHYLLINE [Concomitant]
  22. THEOPHYLLINE [Concomitant]
     Dates: start: 19970101
  23. COUMADIN [Concomitant]
  24. COUMADIN [Concomitant]
     Dates: start: 19970101
  25. OMEPRAZOLE [Concomitant]
  26. OMEPRAZOLE [Concomitant]
     Dates: start: 19970101
  27. VITAMIN E [Concomitant]
  28. VITAMIN E [Concomitant]
     Dates: start: 19970101
  29. TYLENOL [Concomitant]
  30. TYLENOL [Concomitant]
     Dates: start: 19970101
  31. GLUCOSAMINE + MSM [Concomitant]
  32. GLUCOSAMINE + MSM [Concomitant]
     Dates: start: 19970101
  33. T-CAPS [Concomitant]
  34. T-CAPS [Concomitant]
     Dates: start: 19970101
  35. STOOL SOFTENER/LAXATIVE [Concomitant]
  36. STOOL SOFTENER/LAXATIVE [Concomitant]
     Dates: start: 19970101
  37. VITAMIN B-12 [Concomitant]
  38. VITAMIN B-12 [Concomitant]
     Dates: start: 19970101

REACTIONS (1)
  - SKIN LACERATION [None]
